FAERS Safety Report 10646753 (Version 6)
Quarter: 2016Q4

REPORT INFORMATION
  Report Type: Spontaneous
  Country: US (occurrence: US)
  Receive Date: 20141211
  Receipt Date: 20161012
  Transmission Date: 20170206
  Serious: Yes (Hospitalization, Other)
  Sender: FDA-Public Use
  Company Number: US-PFIZER INC-2014338948

PATIENT
  Age: 53 Year
  Sex: Female
  Weight: 145.1 kg

DRUGS (13)
  1. LEVOTHYROXINE. [Concomitant]
     Active Substance: LEVOTHYROXINE
     Indication: THYROID FUNCTION TEST
     Dosage: 0.224 UG, 1X/DAY
     Dates: start: 2008
  2. POTASSIUM [Concomitant]
     Active Substance: POTASSIUM
     Indication: BLOOD POTASSIUM DECREASED
     Dosage: 20 MEQ, 1X/DAY
  3. CELEBREX [Suspect]
     Active Substance: CELECOXIB
     Indication: INFLAMMATION
  4. PRISTIQ EXTENDED-RELEASE [Suspect]
     Active Substance: DESVENLAFAXINE SUCCINATE
     Indication: DEPRESSION
     Dosage: 100 MG, 1X/DAY
     Route: 048
  5. PRAMIPEXOLE. [Concomitant]
     Active Substance: PRAMIPEXOLE
     Indication: RESTLESS LEGS SYNDROME
     Dosage: 0.75 MG, 3X/DAY
  6. CALCIUM [Concomitant]
     Active Substance: CALCIUM
     Indication: BLOOD CALCIUM DECREASED
     Dosage: 2000 MG, DAILY
  7. LOSARTAN. [Concomitant]
     Active Substance: LOSARTAN
     Indication: HYPERTENSION
     Dosage: 1X/DAY
  8. OXYCODONE [Concomitant]
     Active Substance: OXYCODONE
     Indication: PAIN
     Dosage: 15 MG, AS NEEDED
  9. CELEBREX [Suspect]
     Active Substance: CELECOXIB
     Indication: OSTEOARTHRITIS
  10. CELEBREX [Suspect]
     Active Substance: CELECOXIB
     Indication: PAIN
  11. CELEBREX [Suspect]
     Active Substance: CELECOXIB
     Indication: NEUROPATHY PERIPHERAL
     Dosage: 200 MG, 2X/DAY
     Route: 048
  12. CELEBREX [Suspect]
     Active Substance: CELECOXIB
     Indication: PAIN
  13. LYRICA [Suspect]
     Active Substance: PREGABALIN
     Indication: NEUROPATHY PERIPHERAL
     Dosage: 150 MG, 2X/DAY
     Route: 048

REACTIONS (13)
  - Hypersensitivity [Unknown]
  - Peripheral swelling [Unknown]
  - Immune system disorder [Unknown]
  - Brain neoplasm [Unknown]
  - Staphylococcal infection [Recovering/Resolving]
  - Infection [Unknown]
  - Thyroid cancer [Unknown]
  - Cellulitis [Unknown]
  - Pain [Unknown]
  - Lymphoedema [Unknown]
  - Muscle disorder [Unknown]
  - Nasopharyngitis [Unknown]
  - Depression [Unknown]

NARRATIVE: CASE EVENT DATE: 201609
